FAERS Safety Report 4804454-8 (Version None)
Quarter: 2005Q4

REPORT INFORMATION
  Report Type: 
  Country: None (occurrence: None)
  Receive Date: 20051014
  Receipt Date: 20051001
  Transmission Date: 20060501
  Serious: Yes (Hospitalization, Other)
  Sender: FDA-Public Use
  Company Number: 2005136876

PATIENT
  Age: 43 Year
  Sex: Female
  Weight: 56.6996 kg

DRUGS (3)
  1. RELPAX [Suspect]
     Indication: HEADACHE
     Dosage: (40 MG, PRN)
     Dates: start: 20050101
  2. LYRICA [Suspect]
     Indication: ILL-DEFINED DISORDER
     Dosage: 200  MG (100 MG, 2 IN 1 D), ORAL
     Route: 048
     Dates: start: 20050901
  3. TRILEPTAL [Concomitant]

REACTIONS (5)
  - CONDITION AGGRAVATED [None]
  - DIZZINESS [None]
  - DRUG INEFFECTIVE [None]
  - HEADACHE [None]
  - PARTIAL SEIZURES [None]
